FAERS Safety Report 6245157-5 (Version None)
Quarter: 2009Q2

REPORT INFORMATION
  Report Type: 
  Country: None (occurrence: None)
  Receive Date: 20090619
  Receipt Date: 20090324
  Transmission Date: 20091009
  Serious: No
  Sender: FDA-Public Use
  Company Number: ALL1-2009-00778

PATIENT
  Age: 21 Year
  Sex: Female
  Weight: 52.2 kg

DRUGS (6)
  1. VYVANSE [Suspect]
     Indication: ATTENTION DEFICIT/HYPERACTIVITY DISORDER
     Dosage: 20 MG, AS REQ'D ORAL; MG AS REQ'D, ORAL; 60 MG, AS REQ'D, ORAL
     Route: 048
     Dates: start: 20090101, end: 20090101
  2. VYVANSE [Suspect]
     Indication: ATTENTION DEFICIT/HYPERACTIVITY DISORDER
     Dosage: 20 MG, AS REQ'D ORAL; MG AS REQ'D, ORAL; 60 MG, AS REQ'D, ORAL
     Route: 048
     Dates: start: 20090101, end: 20090101
  3. VYVANSE [Suspect]
     Indication: ATTENTION DEFICIT/HYPERACTIVITY DISORDER
     Dosage: 20 MG, AS REQ'D ORAL; MG AS REQ'D, ORAL; 60 MG, AS REQ'D, ORAL
     Route: 048
     Dates: start: 20090201, end: 20090324
  4. LOESTRIN FE (ETHINY LESTRADIOL, FERROUS FUMARATE, NORETHISTERONE ACETA [Concomitant]
  5. MULTIVITAMIN /00831701/ (VITAMINS NOS) [Concomitant]
  6. CRANBERRY /01512301/ (VACCINIUM MACROCARPON) [Concomitant]

REACTIONS (1)
  - LIVEDO RETICULARIS [None]
